FAERS Safety Report 12443115 (Version 1)
Quarter: 2016Q2

REPORT INFORMATION
  Report Type: Spontaneous
  Country: US (occurrence: None)
  Receive Date: 20160606
  Receipt Date: 20160606
  Transmission Date: 20160815
  Serious: No
  Sender: FDA-Public Use
  Company Number: None

PATIENT
  Sex: Female

DRUGS (3)
  1. GLIPIZIDE. [Suspect]
     Active Substance: GLIPIZIDE
  2. METFORMIN [Suspect]
     Active Substance: METFORMIN HYDROCHLORIDE
  3. PREDNISONE. [Suspect]
     Active Substance: PREDNISONE

REACTIONS (4)
  - Decreased appetite [None]
  - Blood glucose decreased [None]
  - Blood glucose increased [None]
  - Abdominal pain upper [None]
